FAERS Safety Report 5450695-9 (Version None)
Quarter: 2007Q3

REPORT INFORMATION
  Report Type: 
  Country: None (occurrence: None)
  Receive Date: 20070910
  Receipt Date: 20070904
  Transmission Date: 20080115
  Serious: Yes (Other)
  Sender: FDA-Public Use
  Company Number: 2007RL000319

PATIENT
  Age: 73 Year
  Sex: Female
  Weight: 55.3388 kg

DRUGS (15)
  1. LOVAZA [Suspect]
     Indication: HYPERLIPIDAEMIA
     Dosage: 1 GM; BID; PO
     Route: 048
     Dates: start: 20060306, end: 20070605
  2. VITAMIN D3 [Concomitant]
  3. MICARDIS HCT [Concomitant]
  4. K-DUR 10 [Concomitant]
  5. FERROUS SULFATE TAB [Concomitant]
  6. ZOMETA [Concomitant]
  7. VITAMIN B-12 [Concomitant]
  8. FOLIC ACID [Concomitant]
  9. LIPITOR [Concomitant]
  10. NIASPAN [Concomitant]
  11. ACAMPROSATE CALCIUM [Concomitant]
  12. SLOW-MAG [Concomitant]
  13. ASPIRIN [Concomitant]
  14. VITAMIN CAP [Concomitant]
  15. THYROID TAB [Concomitant]

REACTIONS (3)
  - INTERNATIONAL NORMALISED RATIO INCREASED [None]
  - PROTHROMBIN TIME PROLONGED [None]
  - VISION BLURRED [None]
